FAERS Safety Report 18288844 (Version 2)
Quarter: 2020Q4

REPORT INFORMATION
  Report Type: Spontaneous
  Country: CN (occurrence: CN)
  Receive Date: 20200921
  Receipt Date: 20201009
  Transmission Date: 20210113
  Serious: Yes (Other)
  Sender: FDA-Public Use
  Company Number: CN-BAYER-2020-202047

PATIENT
  Age: 67 Year
  Sex: Male
  Weight: 65 kg

DRUGS (2)
  1. IOPROMIDE. [Suspect]
     Active Substance: IOPROMIDE
     Indication: LACUNAR INFARCTION
     Dosage: 100 ML, ONCE
     Route: 042
     Dates: start: 20200912, end: 20200912
  2. IOPROMIDE. [Suspect]
     Active Substance: IOPROMIDE
     Indication: ARTERIOGRAM

REACTIONS (2)
  - Upper airway obstruction [Recovered/Resolved]
  - Suffocation feeling [Recovered/Resolved]

NARRATIVE: CASE EVENT DATE: 20200912
